FAERS Safety Report 14110505 (Version 1)
Quarter: 2017Q4

REPORT INFORMATION
  Report Type: Spontaneous
  Country: UM (occurrence: UM)
  Receive Date: 20171019
  Receipt Date: 20171019
  Transmission Date: 20180321
  Serious: Yes (Life-Threatening, Hospitalization, Disabling)
  Sender: FDA-Public Use
  Company Number: None

PATIENT
  Sex: Male
  Weight: 88.65 kg

DRUGS (7)
  1. SERTRALINE [Concomitant]
     Active Substance: SERTRALINE HYDROCHLORIDE
  2. SYNTHROID [Suspect]
     Active Substance: LEVOTHYROXINE SODIUM
     Indication: HYPOTHYROIDISM
     Dosage: ?          QUANTITY:30 TABLET(S);?
     Route: 048
     Dates: start: 20170828, end: 20170828
  3. ZOLOFT [Concomitant]
     Active Substance: SERTRALINE HYDROCHLORIDE
  4. DOXYCYCLINE VIBRAMYCIN [Concomitant]
  5. REMSTAR PLUS C-FLEX [Concomitant]
  6. SLEEP APNEA CPAP MACHINE [Concomitant]
  7. DAILY-VITES WITH IRON [Concomitant]

REACTIONS (3)
  - Palpitations [None]
  - Chest pain [None]
  - Heart rate irregular [None]

NARRATIVE: CASE EVENT DATE: 20171014
